FAERS Safety Report 10661794 (Version 1)
Quarter: 2014Q4

REPORT INFORMATION
  Report Type: Spontaneous
  Country: DK (occurrence: NL)
  Receive Date: 20141218
  Receipt Date: 20141218
  Transmission Date: 20150529
  Serious: Yes (Hospitalization)
  Sender: FDA-Public Use
  Company Number: NL-FRI-1000073115

PATIENT
  Age: 44 Year
  Sex: Male
  Weight: 75 kg

DRUGS (8)
  1. OMEPRAZOL [Concomitant]
     Active Substance: OMEPRAZOLE
     Indication: PRODUCT USED FOR UNKNOWN INDICATION
     Dosage: 40 MG
     Route: 048
     Dates: start: 201411, end: 20141204
  2. LANTUS SOLOSTAR INJ 100E/ML WWSP 3ML [Concomitant]
     Indication: PRODUCT USED FOR UNKNOWN INDICATION
     Dosage: 100E/ML WWSP 3ML
     Route: 065
     Dates: start: 1993
  3. CITALOPRAM [Suspect]
     Active Substance: CITALOPRAM HYDROBROMIDE
     Indication: AGITATED DEPRESSION
     Dosage: 20 MG
     Route: 048
     Dates: start: 201411, end: 20141204
  4. NOVORAPID FLEXPEN INJVLST 100E/ML WWSP 3ML [Concomitant]
     Indication: PRODUCT USED FOR UNKNOWN INDICATION
     Dates: start: 1993
  5. MIRTAZAPINE. [Suspect]
     Active Substance: MIRTAZAPINE
     Indication: AGITATED DEPRESSION
     Dosage: 15 MG
     Route: 048
     Dates: start: 201411, end: 20141204
  6. TEMAZEPAM. [Concomitant]
     Active Substance: TEMAZEPAM
     Indication: PRODUCT USED FOR UNKNOWN INDICATION
     Dosage: 20 MG
     Route: 048
     Dates: start: 201411, end: 20141204
  7. RISPERIDAL [Suspect]
     Active Substance: RISPERIDONE
     Indication: AGITATED DEPRESSION
     Dosage: 1.5 MG
     Route: 048
     Dates: start: 2012, end: 20141204
  8. PRIMPERAN [Concomitant]
     Active Substance: METOCLOPRAMIDE HYDROCHLORIDE
     Indication: PRODUCT USED FOR UNKNOWN INDICATION
     Route: 065
     Dates: start: 201412

REACTIONS (2)
  - Vomiting [Unknown]
  - Hepatic function abnormal [Unknown]

NARRATIVE: CASE EVENT DATE: 20141204
